FAERS Safety Report 22659747 (Version 1)
Quarter: 2023Q2

REPORT INFORMATION
  Report Type: Spontaneous
  Country: US (occurrence: US)
  Receive Date: 20230630
  Receipt Date: 20230630
  Transmission Date: 20230722
  Serious: Yes (Other)
  Sender: FDA-Public Use
  Company Number: US-TEVA-2023-US-2901774

PATIENT
  Age: 65 Year
  Sex: Female
  Weight: 70.31 kg

DRUGS (19)
  1. VALSARTAN [Suspect]
     Active Substance: VALSARTAN
     Indication: Hypertension
     Dosage: 320 MILLIGRAM DAILY;
     Route: 048
     Dates: start: 20160315, end: 20160414
  2. DIOVAN HCT [Suspect]
     Active Substance: HYDROCHLOROTHIAZIDE\VALSARTAN
     Indication: Hypertension
     Dosage: 320MG/25MG 1 TABLET ONCE DAILY
     Route: 048
     Dates: start: 20080208, end: 20100622
  3. DIOVAN [Suspect]
     Active Substance: VALSARTAN
     Indication: Hypertension
     Dosage: 320 MILLIGRAM DAILY;
     Route: 048
     Dates: start: 20100723, end: 20110531
  4. DIOVAN [Suspect]
     Active Substance: VALSARTAN
     Dosage: 320 MILLIGRAM DAILY;
     Route: 048
     Dates: start: 20110710, end: 20140811
  5. EXFORGE [Suspect]
     Active Substance: AMLODIPINE BESYLATE\VALSARTAN
     Indication: Hypertension
     Dosage: 5MG/320MG
     Route: 048
     Dates: start: 20110531, end: 201106
  6. VALSARTAN [Suspect]
     Active Substance: VALSARTAN
     Indication: Hypertension
     Dosage: 320 MILLIGRAM DAILY;
     Route: 048
     Dates: start: 20140812, end: 20150127
  7. VALSARTAN [Suspect]
     Active Substance: VALSARTAN
     Indication: Hypertension
     Dosage: 320 MILLIGRAM DAILY;
     Route: 048
     Dates: start: 20150130, end: 20160314
  8. VALSARTAN [Suspect]
     Active Substance: VALSARTAN
     Dosage: 320 MILLIGRAM DAILY;
     Route: 048
     Dates: start: 20160716, end: 20160809
  9. VALSARTAN [Suspect]
     Active Substance: VALSARTAN
     Indication: Hypertension
     Dosage: 320 MILLIGRAM DAILY;
     Route: 048
     Dates: start: 20160810, end: 20180705
  10. LOSARTAN [Suspect]
     Active Substance: LOSARTAN
     Indication: Hypertension
     Dosage: 100 MILLIGRAM DAILY;
     Route: 048
     Dates: start: 20180731, end: 20190204
  11. LOSARTAN [Suspect]
     Active Substance: LOSARTAN
     Indication: Hypertension
     Dosage: 100 MILLIGRAM DAILY;
     Route: 048
     Dates: start: 20200420, end: 20200520
  12. VALSARTAN [Suspect]
     Active Substance: VALSARTAN
     Indication: Hypertension
     Dosage: 320 MILLIGRAM DAILY;
     Route: 048
     Dates: start: 20190205, end: 20190511
  13. VALSARTAN [Suspect]
     Active Substance: VALSARTAN
     Dosage: 320 MILLIGRAM DAILY;
     Route: 048
     Dates: start: 20190930, end: 20191030
  14. VALSARTAN [Suspect]
     Active Substance: VALSARTAN
     Indication: Hypertension
     Dosage: 320 MILLIGRAM DAILY;
     Route: 048
     Dates: start: 20190516, end: 20190921
  15. VALSARTAN [Suspect]
     Active Substance: VALSARTAN
     Dosage: 320 MILLIGRAM DAILY;
     Route: 048
     Dates: start: 20200225, end: 20200311
  16. MULTI-VITAMIN [Concomitant]
     Active Substance: .ALPHA.-TOCOPHEROL ACETATE, DL-\ASCORBIC ACID\CYANOCOBALAMIN\FLUORIDE ION\FOLIC ACID\NIACIN\PYRIDOXI
     Indication: Product used for unknown indication
     Dosage: STANDARD DOSAGE TAKEN DAILY FOR HEALTH AND LIFESTYLE UNTIL PRESENT
     Dates: start: 1980
  17. Alive Womans 50+ Multi-Vitamin [Concomitant]
     Indication: Product used for unknown indication
     Dosage: STANDARD DOSAGE TAKEN DAILY FOR HEALTH AND LIFESTYLE UNTIL PRESENT
     Dates: start: 2018
  18. HYDROCHLOROTHIAZIDE [Concomitant]
     Active Substance: HYDROCHLOROTHIAZIDE
     Indication: Hypertension
  19. CLOBETASOL [Concomitant]
     Active Substance: CLOBETASOL
     Indication: Psoriasis
     Dosage: 0.05% SCALP SOLUTION

REACTIONS (2)
  - Renal cancer stage I [Recovered/Resolved]
  - Aortic aneurysm [Recovered/Resolved]
